FAERS Safety Report 8456988-5 (Version None)
Quarter: 2012Q2

REPORT INFORMATION
  Report Type: 
  Country: None (occurrence: None)
  Receive Date: 20120323
  Receipt Date: 20110902
  Transmission Date: 20120825
  Serious: Yes (Hospitalization)
  Sender: FDA-Public Use
  Company Number: 163-21880-11090829

PATIENT
  Age: 70 Year
  Sex: Female
  Weight: 83.4619 kg

DRUGS (5)
  1. COUMADIN [Concomitant]
  2. ATENOLOL [Concomitant]
  3. LISINOPRIL [Suspect]
     Indication: HYPERTENSION
     Dates: end: 20110829
  4. REVLIMID [Suspect]
     Indication: MULTIPLE MYELOMA
     Dosage: 5 MG, 1 IN 1 D, PO
     Route: 048
     Dates: start: 20110721, end: 20110829
  5. HYDROCHLOROTHIAZIDE [Concomitant]

REACTIONS (3)
  - URTICARIA [None]
  - HYPERSENSITIVITY [None]
  - ABDOMINAL PAIN UPPER [None]
